FAERS Safety Report 9485963 (Version 1)
Quarter: 2013Q3

REPORT INFORMATION
  Report Type: Spontaneous
  Country: DE (occurrence: None)
  Receive Date: 20130820
  Receipt Date: 20130820
  Transmission Date: 20140515
  Serious: Yes (Other)
  Sender: FDA-Public Use
  Company Number: 7212454

PATIENT
  Age: 58 Year
  Sex: Female

DRUGS (3)
  1. BISOPROLOL [Suspect]
     Indication: HYPERTENSION
     Route: 048
     Dates: start: 20130219, end: 20130730
  2. L-THYROXIN [Suspect]
     Indication: HYPOTHYROIDISM
     Route: 048
     Dates: start: 20120801, end: 20130730
  3. VALSARTAN [Concomitant]

REACTIONS (7)
  - Cerebral ischaemia [None]
  - Encephalitis [None]
  - Dysgeusia [None]
  - Hyposmia [None]
  - Hypogeusia [None]
  - Parosmia [None]
  - Drug interaction [None]
